FAERS Safety Report 20981092 (Version 1)
Quarter: 2022Q2

REPORT INFORMATION
  Report Type: Spontaneous
  Country: US (occurrence: US)
  Receive Date: 20220620
  Receipt Date: 20220620
  Transmission Date: 20220721
  Serious: Yes (Other)
  Sender: FDA-Public Use
  Company Number: US-PFIZER INC-PV202200004587

PATIENT
  Age: 34 Year
  Sex: Female

DRUGS (1)
  1. XELJANZ [Suspect]
     Active Substance: TOFACITINIB CITRATE
     Dosage: UNK
     Dates: start: 20110601

REACTIONS (6)
  - Abortion spontaneous [Unknown]
  - Condition aggravated [Unknown]
  - Illness [Unknown]
  - Lip blister [Unknown]
  - Urticaria [Unknown]
  - Fungal infection [Unknown]

NARRATIVE: CASE EVENT DATE: 20110601
